FAERS Safety Report 16926731 (Version 2)
Quarter: 2020Q1

REPORT INFORMATION
  Report Type: Spontaneous
  Country: US (occurrence: US)
  Receive Date: 20191016
  Receipt Date: 20200205
  Transmission Date: 20200409
  Serious: No
  Sender: FDA-Public Use
  Company Number: US-SA-2019SA285471

PATIENT
  Age: 35 Year
  Sex: Female

DRUGS (8)
  1. FINACEA [Concomitant]
     Active Substance: AZELAIC ACID
     Dosage: APPLY TO ENTIRE AREA QHS, BID
     Route: 061
  2. PROTOPIC [Concomitant]
     Active Substance: TACROLIMUS
     Dosage: UNK UNK, BID
     Route: 061
  3. DUPIXENT [Suspect]
     Active Substance: DUPILUMAB
     Indication: DERMATITIS ATOPIC
     Dosage: 300 MG, QOW
     Route: 058
     Dates: start: 20190425
  4. ALYACEN [Concomitant]
     Active Substance: ETHINYL ESTRADIOL\NORETHINDRONE
  5. ONEXTON [Concomitant]
     Active Substance: BENZOYL PEROXIDE\CLINDAMYCIN PHOSPHATE
     Indication: RASH PAPULAR
     Dosage: UNK UNK, QD
     Route: 061
  6. ULTRAVATE [BETAMETHASONE DIPROPIONATE] [Concomitant]
     Dosage: UNK UNK, BID
     Route: 061
  7. DESOXIMETASONE. [Concomitant]
     Active Substance: DESOXIMETASONE
     Dosage: 1 APPLICATION TO AFFECTED ARES, BID
     Route: 061
  8. ADAPALENE. [Concomitant]
     Active Substance: ADAPALENE
     Dosage: UNK UNK, HS
     Route: 061

REACTIONS (11)
  - Rash [Recovered/Resolved]
  - Inflammation [Unknown]
  - Skin irritation [Unknown]
  - Pruritus [Recovered/Resolved]
  - Skin exfoliation [Not Recovered/Not Resolved]
  - Skin fissures [Unknown]
  - Therapeutic response decreased [Unknown]
  - Dry skin [Unknown]
  - Eczema [Unknown]
  - Erythema [Not Recovered/Not Resolved]
  - Drug ineffective [Unknown]
